FAERS Safety Report 6834535-9 (Version None)
Quarter: 2010Q3

REPORT INFORMATION
  Report Type: 
  Country: None (occurrence: None)
  Receive Date: 20100712
  Receipt Date: 20070618
  Transmission Date: 20110219
  Serious: No
  Sender: FDA-Public Use
  Company Number: US-PFIZER INC-2007022768

PATIENT
  Sex: Female
  Weight: 64.41 kg

DRUGS (12)
  1. CHANTIX [Suspect]
     Indication: SMOKING CESSATION THERAPY
     Dosage: BID:EVERY DAY
     Route: 048
     Dates: start: 20070201, end: 20070316
  2. ANTIHYPERTENSIVES [Concomitant]
     Indication: HYPERTENSION
  3. ADVAIR DISKUS 100/50 [Concomitant]
  4. LOVASTATIN [Concomitant]
  5. FELODIPINE [Concomitant]
  6. XANAX [Concomitant]
  7. ATENOLOL [Concomitant]
  8. TEMAZEPAM [Concomitant]
  9. HYDROCHLOROTHIAZIDE [Concomitant]
  10. ACETYLSALICYLIC ACID [Concomitant]
  11. WELLBUTRIN [Concomitant]
  12. NICOTINE [Concomitant]
     Route: 062

REACTIONS (2)
  - DRUG INEFFECTIVE [None]
  - NAUSEA [None]
